FAERS Safety Report 5239623-9 (Version None)
Quarter: 2007Q1

REPORT INFORMATION
  Report Type: 
  Country: None (occurrence: None)
  Receive Date: 20070216
  Receipt Date: 20070216
  Transmission Date: 20070707
  Serious: Yes (Other)
  Sender: FDA-Public Use
  Company Number: FR-GLAXOSMITHKLINE-B0455089A

PATIENT
  Age: 9 Year
  Sex: Female
  Weight: 29 kg

DRUGS (2)
  1. MALARONE [Suspect]
     Indication: MALARIA PROPHYLAXIS
     Dosage: 2TAB SEE DOSAGE TEXT
     Route: 048
     Dates: start: 20061220, end: 20070104
  2. YELLOW FEVER VACCINE [Concomitant]
     Indication: PROPHYLAXIS
     Dates: start: 20061205, end: 20061205

REACTIONS (3)
  - COW'S MILK INTOLERANCE [None]
  - DECREASED APPETITE [None]
  - HEADACHE [None]
